FAERS Safety Report 8307010-2 (Version None)
Quarter: 2012Q2

REPORT INFORMATION
  Report Type: 
  Country: None (occurrence: None)
  Receive Date: 20120424
  Receipt Date: 20120416
  Transmission Date: 20120825
  Serious: Yes (Other)
  Sender: FDA-Public Use
  Company Number: PHHY2012VE033970

PATIENT
  Sex: Female

DRUGS (2)
  1. ZOLEDRONOC ACID [Suspect]
     Indication: OSTEOPOROSIS
     Dosage: ONCE A YEAR
     Route: 042
     Dates: start: 20090131
  2. ZOLEDRONOC ACID [Suspect]
     Dosage: ONCE A YEAR
     Route: 042
     Dates: start: 20120101

REACTIONS (1)
  - NEURITIS CRANIAL [None]
